FAERS Safety Report 8414118-X (Version None)
Quarter: 2012Q2

REPORT INFORMATION
  Report Type: 
  Country: None (occurrence: None)
  Receive Date: 20120605
  Receipt Date: 20120528
  Transmission Date: 20120825
  Serious: Yes (Hospitalization, Other)
  Sender: FDA-Public Use
  Company Number: GB-B.I. PHARMACEUTICALS,INC./RIDGEFIELD-2012-UK-00715UK

PATIENT
  Age: 84 Year
  Sex: Female

DRUGS (5)
  1. FUROSEMIDE [Concomitant]
  2. DIGOXIN [Concomitant]
  3. VALSARTAN [Concomitant]
  4. PRADAXA [Suspect]
     Dosage: 220 MG
     Route: 048
     Dates: start: 20120426, end: 20120503
  5. ACETAMINOPHEN [Concomitant]

REACTIONS (4)
  - GASTRITIS [None]
  - ABDOMINAL PAIN [None]
  - GASTROOESOPHAGITIS [None]
  - HAEMATEMESIS [None]
